FAERS Safety Report 6518155-1 (Version None)
Quarter: 2009Q4

REPORT INFORMATION
  Report Type: 
  Country: None (occurrence: None)
  Receive Date: 20091223
  Receipt Date: 20091223
  Transmission Date: 20100525
  Serious: Yes (Life-Threatening)
  Sender: FDA-Public Use
  Company Number: None

PATIENT
  Age: 16 Year
  Sex: Female
  Weight: 54.8852 kg

DRUGS (1)
  1. MEDROXYPROGESTERONE [Suspect]
     Indication: INJECTABLE CONTRACEPTION
     Dosage: 150 MG Q 12-13 WEEKS IM  RECEIVED 5 DOSES, Q 12-13
     Route: 030

REACTIONS (1)
  - ANAPHYLACTIC REACTION [None]
